FAERS Safety Report 8812632 (Version 3)
Quarter: 2013Q3

REPORT INFORMATION
  Report Type: Report from Study
  Country: MX (occurrence: MX)
  Receive Date: 20120927
  Receipt Date: 20130801
  Transmission Date: 20140515
  Serious: Yes (Hospitalization, Other)
  Sender: FDA-Public Use
  Company Number: PHHY2012MX084301

PATIENT
  Age: 66 Year
  Sex: Male

DRUGS (4)
  1. CO-DIOVAN [Suspect]
     Indication: HYPERTENSION
     Dosage: 1 DF (VALS 160 MG, HYDR 12.5 MG), DAILY
     Route: 048
     Dates: start: 201108
  2. CO-DIOVAN [Suspect]
     Dosage: 1 DF (VALS 160 MG, HYDR 25 MG), DAILY
     Route: 048
  3. VALPROATE [Concomitant]
     Indication: MENTAL DISORDER
     Dosage: 2 UKN, DAILY
  4. RISPERIDONE [Concomitant]
     Indication: MENTAL DISORDER
     Dosage: UNK UKN, UNK

REACTIONS (1)
  - Hypothyroidism [Recovered/Resolved]
